FAERS Safety Report 19380029 (Version 1)
Quarter: 2021Q2

REPORT INFORMATION
  Report Type: Spontaneous
  Country: NO (occurrence: NO)
  Receive Date: 20210607
  Receipt Date: 20210607
  Transmission Date: 20210717
  Serious: Yes (Hospitalization)
  Sender: FDA-Public Use
  Company Number: NO-ALK-ABELLO A/S-2021AA001973

PATIENT

DRUGS (1)
  1. ACARIZAX [Suspect]
     Active Substance: DERMATOPHAGOIDES FARINAE\DERMATOPHAGOIDES PTERONYSSINUS
     Indication: MITE ALLERGY
     Dosage: 1 DOSAGE FORM, QD
     Route: 060
     Dates: start: 20210225, end: 20210310

REACTIONS (4)
  - Abdominal pain [Recovered/Resolved]
  - Intestinal angioedema [Recovered/Resolved]
  - Gastrointestinal wall thickening [Recovered/Resolved]
  - Eosinophilia [Recovered/Resolved]

NARRATIVE: CASE EVENT DATE: 20210225
